FAERS Safety Report 8830061 (Version 1)
Quarter: 2012Q4

REPORT INFORMATION
  Report Type: 
  Country: US (occurrence: US)
  Receive Date: 20121008
  Receipt Date: 20121008
  Transmission Date: 20130627
  Serious: No
  Sender: FDA-Public Use
  Company Number: US-PFIZER INC-2012247138

PATIENT
  Sex: Female

DRUGS (2)
  1. LYRICA [Suspect]
     Dosage: 200 mg, UNK
     Route: 048
     Dates: start: 2012, end: 2012
  2. NAPROXEN SODIUM [Suspect]
     Dosage: UNK

REACTIONS (4)
  - Mood swings [Unknown]
  - Contusion [Unknown]
  - Alopecia [Unknown]
  - Weight increased [Unknown]
